FAERS Safety Report 6745233-4 (Version None)
Quarter: 2010Q2

REPORT INFORMATION
  Report Type: 
  Country: None (occurrence: None)
  Receive Date: 20100528
  Receipt Date: 20100518
  Transmission Date: 20101027
  Serious: No
  Sender: FDA-Public Use
  Company Number: US-BIOGENIDEC-2010BI013557

PATIENT
  Sex: Female

DRUGS (1)
  1. TYSABRI [Suspect]
     Indication: MULTIPLE SCLEROSIS
     Route: 042
     Dates: start: 20080910, end: 20100318

REACTIONS (5)
  - ABNORMAL LOSS OF WEIGHT [None]
  - AGEUSIA [None]
  - POLLAKIURIA [None]
  - RENAL MASS [None]
  - URINARY HESITATION [None]
